FAERS Safety Report 8455623-X (Version None)
Quarter: 2012Q2

REPORT INFORMATION
  Report Type: 
  Country: None (occurrence: None)
  Receive Date: 20120613
  Receipt Date: 20120604
  Transmission Date: 20120825
  Serious: Yes (Other)
  Sender: FDA-Public Use
  Company Number: 2012SP030003

PATIENT
  Age: 60 Year
  Sex: Male

DRUGS (16)
  1. AKINETON [Concomitant]
  2. LORAZEPAM [Suspect]
     Indication: PRODUCT USED FOR UNKNOWN INDICATION
     Dosage: 3.7G MG;QD ; 2.5 MG;QD ; 6.25 MG;QD ; 7.5 MG;QD ; 5 MG;QD ; 3.25 MG;QD ; 2.5 MG;QD ; 1.25 MG;QD
     Dates: start: 20120110, end: 20120110
  3. LORAZEPAM [Suspect]
     Indication: PRODUCT USED FOR UNKNOWN INDICATION
     Dosage: 3.7G MG;QD ; 2.5 MG;QD ; 6.25 MG;QD ; 7.5 MG;QD ; 5 MG;QD ; 3.25 MG;QD ; 2.5 MG;QD ; 1.25 MG;QD
     Dates: start: 20111229, end: 20111229
  4. LORAZEPAM [Suspect]
     Indication: PRODUCT USED FOR UNKNOWN INDICATION
     Dosage: 3.7G MG;QD ; 2.5 MG;QD ; 6.25 MG;QD ; 7.5 MG;QD ; 5 MG;QD ; 3.25 MG;QD ; 2.5 MG;QD ; 1.25 MG;QD
     Dates: start: 20111231, end: 20120108
  5. LORAZEPAM [Suspect]
     Indication: PRODUCT USED FOR UNKNOWN INDICATION
     Dosage: 3.7G MG;QD ; 2.5 MG;QD ; 6.25 MG;QD ; 7.5 MG;QD ; 5 MG;QD ; 3.25 MG;QD ; 2.5 MG;QD ; 1.25 MG;QD
     Dates: start: 20120112, end: 20120117
  6. LORAZEPAM [Suspect]
     Indication: PRODUCT USED FOR UNKNOWN INDICATION
     Dosage: 3.7G MG;QD ; 2.5 MG;QD ; 6.25 MG;QD ; 7.5 MG;QD ; 5 MG;QD ; 3.25 MG;QD ; 2.5 MG;QD ; 1.25 MG;QD
     Dates: start: 20120118
  7. LORAZEPAM [Suspect]
     Indication: PRODUCT USED FOR UNKNOWN INDICATION
     Dosage: 3.7G MG;QD ; 2.5 MG;QD ; 6.25 MG;QD ; 7.5 MG;QD ; 5 MG;QD ; 3.25 MG;QD ; 2.5 MG;QD ; 1.25 MG;QD
     Dates: start: 20111227, end: 20111228
  8. LORAZEPAM [Suspect]
     Indication: PRODUCT USED FOR UNKNOWN INDICATION
     Dosage: 3.7G MG;QD ; 2.5 MG;QD ; 6.25 MG;QD ; 7.5 MG;QD ; 5 MG;QD ; 3.25 MG;QD ; 2.5 MG;QD ; 1.25 MG;QD
     Dates: start: 20120111, end: 20120111
  9. LORAZEPAM [Suspect]
     Indication: PRODUCT USED FOR UNKNOWN INDICATION
     Dosage: 3.7G MG;QD ; 2.5 MG;QD ; 6.25 MG;QD ; 7.5 MG;QD ; 5 MG;QD ; 3.25 MG;QD ; 2.5 MG;QD ; 1.25 MG;QD
     Dates: start: 20111230, end: 20111230
  10. OLANZAPINE [Concomitant]
  11. SEROQUEL [Suspect]
     Indication: PRODUCT USED FOR UNKNOWN INDICATION
     Dosage: 200 MG;QD ; 350 MG;QD ; 400 MG;QD ; 100 MG;QD
     Dates: start: 20111228, end: 20111228
  12. SEROQUEL [Suspect]
     Indication: PRODUCT USED FOR UNKNOWN INDICATION
     Dosage: 200 MG;QD ; 350 MG;QD ; 400 MG;QD ; 100 MG;QD
     Dates: start: 20111229, end: 20111229
  13. SEROQUEL [Suspect]
     Indication: PRODUCT USED FOR UNKNOWN INDICATION
     Dosage: 200 MG;QD ; 350 MG;QD ; 400 MG;QD ; 100 MG;QD
     Dates: start: 20111230, end: 20111230
  14. SEROQUEL [Suspect]
     Indication: PRODUCT USED FOR UNKNOWN INDICATION
     Dosage: 200 MG;QD ; 350 MG;QD ; 400 MG;QD ; 100 MG;QD
     Dates: start: 20111227, end: 20111227
  15. MIRTAZAPINE [Suspect]
     Indication: PRODUCT USED FOR UNKNOWN INDICATION
     Dosage: 30 MG;QD ; 45 MG;QD
     Dates: start: 20111228
  16. MIRTAZAPINE [Suspect]
     Indication: PRODUCT USED FOR UNKNOWN INDICATION
     Dosage: 30 MG;QD ; 45 MG;QD
     Dates: start: 20111227, end: 20111227

REACTIONS (2)
  - VISUAL IMPAIRMENT [None]
  - DIPLOPIA [None]
